FAERS Safety Report 9016380 (Version 1)
Quarter: 2013Q1

REPORT INFORMATION
  Report Type: Spontaneous
  Country: US (occurrence: US)
  Receive Date: 20130116
  Receipt Date: 20130116
  Transmission Date: 20140127
  Serious: Yes (Death)
  Sender: FDA-Public Use
  Company Number: US-ROXANE LABORATORIES, INC.-2013-RO-00060RO

PATIENT
  Age: 24 Year
  Sex: Female

DRUGS (8)
  1. HYDROMORPHONE [Suspect]
  2. METHADONE [Suspect]
  3. PARACETAMOL [Suspect]
  4. KEPPRA [Suspect]
  5. DIPHENHYDRAMINE [Suspect]
  6. HYDROCODONE [Suspect]
  7. LEVETIRACETAM [Suspect]
  8. MEPROBAMATE [Suspect]

REACTIONS (1)
  - Accidental overdose [Fatal]
